FAERS Safety Report 8641266 (Version 4)
Quarter: 2012Q4

REPORT INFORMATION
  Report Type: 
  Country: JP (occurrence: JP)
  Receive Date: 20120628
  Receipt Date: 20120924
  Transmission Date: 20130627
  Serious: Yes (Other)
  Sender: FDA-Public Use
  Company Number: JP-NAPPMUNDI-MAG-2012-0002209

PATIENT
  Age: 28 Year
  Sex: Female
  Weight: 53 kg

DRUGS (3)
  1. THEOPHYLLINE [Suspect]
     Indication: ASTHMA
     Dosage: 200 mg, single
     Route: 048
     Dates: start: 20120526, end: 20120528
  2. ADOAIR [Concomitant]
     Dosage: 500 mcg, daily
     Route: 055
     Dates: start: 20120526
  3. PREDONINE                          /00016201/ [Concomitant]
     Dosage: 5 mg, qid
     Route: 048
     Dates: start: 20120526, end: 20120602

REACTIONS (4)
  - Arthralgia [Recovered/Resolved]
  - Malaise [Unknown]
  - Diarrhoea [Recovered/Resolved]
  - Nausea [Recovered/Resolved]
